FAERS Safety Report 12167103 (Version 1)
Quarter: 2016Q1

REPORT INFORMATION
  Report Type: Spontaneous
  Country: US (occurrence: None)
  Receive Date: 20160309
  Receipt Date: 20160309
  Transmission Date: 20160526
  Serious: Yes (Other)
  Sender: FDA-Public Use
  Company Number: None

PATIENT
  Age: 45 Year
  Sex: Female
  Weight: 72.58 kg

DRUGS (1)
  1. REMICADE [Suspect]
     Active Substance: INFLIXIMAB
     Indication: ARTHRITIS
     Dosage: EVERY 8 WEEKS INTO A VEIN
     Route: 042

REACTIONS (2)
  - Rash generalised [None]
  - Hypersensitivity [None]

NARRATIVE: CASE EVENT DATE: 20160101
